FAERS Safety Report 20411073 (Version 1)
Quarter: 2022Q1

REPORT INFORMATION
  Report Type: Spontaneous
  Country: US (occurrence: None)
  Receive Date: 20220131
  Receipt Date: 20220131
  Transmission Date: 20220424
  Serious: No
  Sender: FDA-Public Use
  Company Number: None

PATIENT
  Age: 79 Year
  Sex: Male

DRUGS (1)
  1. SPIRONOLACTONE [Suspect]
     Active Substance: SPIRONOLACTONE
     Dosage: FREQUENCY : DAILY;?
     Route: 048
     Dates: start: 20211008, end: 20211013

REACTIONS (1)
  - Headache [None]

NARRATIVE: CASE EVENT DATE: 20211013
